FAERS Safety Report 5863127-3 (Version None)
Quarter: 2008Q3

REPORT INFORMATION
  Report Type: 
  Country: None (occurrence: None)
  Receive Date: 20080828
  Receipt Date: 20080825
  Transmission Date: 20090109
  Serious: Yes (Other)
  Sender: FDA-Public Use
  Company Number: CH-WYE-G02050408

PATIENT
  Sex: Female

DRUGS (4)
  1. TEMESTA [Suspect]
     Dates: start: 20080101
  2. SOLIAN [Suspect]
     Dosage: 50 MG, FREQUENCY UNKNOWN
  3. SALICYLIC ACID [Suspect]
     Dosage: 100 MG, FREQUENCY UNKNOWN
  4. EFFEXOR [Suspect]
     Dosage: 150 MG, FREQUENCY UNKNOWN

REACTIONS (2)
  - SPEECH DISORDER [None]
  - TONGUE DISORDER [None]
